FAERS Safety Report 9849804 (Version 1)
Quarter: 2014Q1

REPORT INFORMATION
  Report Type: Spontaneous
  Country: US (occurrence: None)
  Receive Date: 20140124
  Receipt Date: 20140124
  Transmission Date: 20141002
  Serious: Yes (Death)
  Sender: FDA-Public Use
  Company Number: 2014AP000354

PATIENT
  Age: 37 Year
  Sex: Female

DRUGS (6)
  1. CITALOPRAM [Suspect]
  2. LAMOTRIGINE TABLETS [Suspect]
  3. MORPHINE [Suspect]
  4. DIAZEPAM [Suspect]
  5. CLONAZEPAM TABLETS, USP [Suspect]
  6. MARIJUANA [Suspect]

REACTIONS (2)
  - Cardio-respiratory arrest [None]
  - Intentional drug misuse [None]
